FAERS Safety Report 8015213-X (Version None)
Quarter: 2011Q4

REPORT INFORMATION
  Report Type: 
  Country: None (occurrence: None)
  Receive Date: 20111230
  Receipt Date: 20111228
  Transmission Date: 20120403
  Serious: No
  Sender: FDA-Public Use
  Company Number: US-BIOGENIDEC-2011BI048851

PATIENT
  Sex: Female

DRUGS (2)
  1. TYSABRI [Suspect]
     Indication: MULTIPLE SCLEROSIS
     Route: 042
     Dates: start: 20070605
  2. MEDICATION (NOS) [Concomitant]
     Indication: AFFECTIVE DISORDER

REACTIONS (2)
  - PAIN IN EXTREMITY [None]
  - NECROTISING FASCIITIS [None]
